FAERS Safety Report 25977598 (Version 2)
Quarter: 2025Q4

REPORT INFORMATION
  Report Type: Spontaneous
  Country: US (occurrence: None)
  Receive Date: 20251030
  Receipt Date: 20251215
  Transmission Date: 20260117
  Serious: No
  Sender: UCB
  Company Number: US-UCBSA-2025041175

PATIENT
  Age: 36 Year
  Weight: 92.08 kg

DRUGS (1)
  1. BIMZELX [Interacting]
     Active Substance: BIMEKIZUMAB-BKZX
     Indication: Hidradenitis
     Dosage: 320 MILLIGRAM, EV 2 WEEKS(QOW)

REACTIONS (4)
  - Rash [Recovering/Resolving]
  - Tinea cruris [Unknown]
  - Acne [Unknown]
  - Drug interaction [Unknown]
